FAERS Safety Report 8434131 (Version 2)
Quarter: 2020Q3

REPORT INFORMATION
  Report Type: Spontaneous
  Country: US (occurrence: None)
  Receive Date: 20120221
  Receipt Date: 20120221
  Transmission Date: 20201104
  Serious: Yes (Other)
  Sender: FDA-Public Use
  Company Number: 2012SP007368

PATIENT

DRUGS (2)
  1. SELUMETINIB. [Suspect]
     Active Substance: SELUMETINIB
     Indication: MALIGNANT MELANOMA
     Dosage: 100 MG;BID
  2. TEMOZOLOMIDE. [Suspect]
     Active Substance: TEMOZOLOMIDE
     Indication: MALIGNANT MELANOMA
     Dosage: 200 MG/M2;QD;PO
     Route: 048

REACTIONS (6)
  - Vomiting [None]
  - Confusional state [None]
  - Oedema peripheral [None]
  - Headache [None]
  - Small intestinal obstruction [None]
  - Fatigue [None]
